FAERS Safety Report 9516981 (Version 1)
Quarter: 2013Q3

REPORT INFORMATION
  Report Type: Spontaneous
  Country: FR (occurrence: FR)
  Receive Date: 20130911
  Receipt Date: 20130911
  Transmission Date: 20140515
  Serious: Yes (Hospitalization)
  Sender: FDA-Public Use
  Company Number: FR-BAXTER-2013BAX034971

PATIENT
  Age: 70 Year
  Sex: Male

DRUGS (20)
  1. ENDOXAN 2000 MG, LYOPHILISAT POUR SOLUTION INJECTABLE [Suspect]
     Indication: B-CELL LYMPHOMA
     Route: 042
     Dates: start: 20121001, end: 20121011
  2. ENDOXAN 2000 MG, LYOPHILISAT POUR SOLUTION INJECTABLE [Suspect]
     Route: 042
     Dates: start: 20121011
  3. VINCRISTINE SULPHATE [Suspect]
     Indication: B-CELL LYMPHOMA
     Route: 065
     Dates: start: 20121001, end: 20121011
  4. VINCRISTINE SULPHATE [Suspect]
     Route: 065
     Dates: start: 20121011
  5. TAZOCILLINE [Concomitant]
     Indication: ANTIBIOTIC THERAPY
     Route: 065
     Dates: start: 20120930, end: 20121007
  6. TAZOCILLINE [Concomitant]
     Indication: PYREXIA
     Route: 065
     Dates: start: 20121011
  7. TAZOCILLINE [Concomitant]
     Indication: SYSTEMIC INFLAMMATORY RESPONSE SYNDROME
     Route: 065
     Dates: start: 20121015
  8. PREDNISONE [Concomitant]
     Indication: B-CELL LYMPHOMA
     Route: 065
     Dates: start: 20121001, end: 20121011
  9. PREDNISONE [Concomitant]
     Route: 065
     Dates: start: 20121011
  10. METHOTREXATE [Concomitant]
     Indication: B-CELL LYMPHOMA
     Route: 037
     Dates: start: 20121004, end: 20121004
  11. ARACYTINE [Concomitant]
     Indication: B-CELL LYMPHOMA
     Route: 037
     Dates: start: 20121004, end: 20121004
  12. METHYLPREDNISOLONE [Concomitant]
     Indication: B-CELL LYMPHOMA
     Route: 037
     Dates: start: 20121004, end: 20121004
  13. METHYLPREDNISOLONE [Concomitant]
     Route: 042
     Dates: start: 20120930
  14. METHYLPREDNISOLONE [Concomitant]
     Route: 065
     Dates: start: 20121011
  15. CEFTRIAXONE [Concomitant]
     Indication: PRODUCT USED FOR UNKNOWN INDICATION
     Route: 065
     Dates: start: 20121007
  16. FUROSEMIDE [Concomitant]
     Indication: PRODUCT USED FOR UNKNOWN INDICATION
     Route: 042
     Dates: start: 20120930
  17. MIDAZOLAM [Concomitant]
     Indication: RESPIRATORY FATIGUE
     Route: 065
     Dates: start: 20120930
  18. MIDAZOLAM [Concomitant]
     Indication: ANXIETY
  19. DOXORUBICIN [Concomitant]
     Indication: CHEMOTHERAPY
     Route: 065
     Dates: start: 20121011
  20. MABTHERA [Concomitant]
     Indication: CHEMOTHERAPY
     Route: 065
     Dates: start: 20121011

REACTIONS (2)
  - Cholestasis [Recovering/Resolving]
  - Cell death [Recovering/Resolving]
